FAERS Safety Report 7893136-4 (Version None)
Quarter: 2011Q4

REPORT INFORMATION
  Report Type: 
  Country: None (occurrence: None)
  Receive Date: 20111104
  Receipt Date: 20111026
  Transmission Date: 20120403
  Serious: Yes (Other)
  Sender: FDA-Public Use
  Company Number: ES-JNJFOC-20111008888

PATIENT
  Age: 54 Year
  Sex: Female

DRUGS (3)
  1. AZATHIOPRINE [Suspect]
     Indication: CROHN'S DISEASE
     Dosage: TREATED ON MAINTENANCE THERAPY FOR APPROXIMATELY 3 YEARS
     Route: 065
     Dates: start: 20080101
  2. AZATHIOPRINE [Suspect]
     Route: 065
  3. REMICADE [Suspect]
     Indication: CROHN'S DISEASE
     Dosage: TREATED ON MAINTENANCE THERAPY FOR APPROXIMATELY 3 YEARS
     Route: 042
     Dates: start: 20080101

REACTIONS (1)
  - SQUAMOUS CELL CARCINOMA [None]
